FAERS Safety Report 5768986-0 (Version None)
Quarter: 2008Q2

REPORT INFORMATION
  Report Type: 
  Country: None (occurrence: None)
  Receive Date: 20080612
  Receipt Date: 20080317
  Transmission Date: 20081010
  Serious: No
  Sender: FDA-Public Use
  Company Number: US-ABBOTT-08P-163-0442930-00

PATIENT
  Sex: Female
  Weight: 78.542 kg

DRUGS (3)
  1. HUMIRA [Suspect]
     Indication: RHEUMATOID ARTHRITIS
     Route: 058
     Dates: start: 20030101, end: 20080304
  2. CELECOXIB [Concomitant]
     Indication: ARTHRITIS
     Route: 048
     Dates: start: 20050101
  3. ICELAND HEALTH JOINT RELIEF FORMULA [Concomitant]
     Indication: ARTHRALGIA
     Route: 048
     Dates: start: 20080201

REACTIONS (1)
  - BRONCHITIS [None]
